FAERS Safety Report 12727104 (Version 5)
Quarter: 2017Q1

REPORT INFORMATION
  Report Type: Report from Study
  Country: CL (occurrence: CL)
  Receive Date: 20160909
  Receipt Date: 20170307
  Transmission Date: 20170428
  Serious: Yes (Death, Hospitalization)
  Sender: FDA-Public Use
  Company Number: CL-ROCHE-1696001

PATIENT
  Age: 71 Year
  Sex: Male
  Weight: 86.1 kg

DRUGS (12)
  1. ENALAPRIL [Concomitant]
     Active Substance: ENALAPRIL
     Indication: HYPERTENSION
     Route: 065
     Dates: start: 1999
  2. CARBOPLATIN. [Suspect]
     Active Substance: CARBOPLATIN
     Indication: NON-SMALL CELL LUNG CANCER STAGE IV
     Dosage: MOST RECENT DOSE PRIOR TO THE EVENT WAS RECEIVED ON 16/DEC/2015 (575 MG)?TARGET AUC = 6 MG/ML/MIN
     Route: 042
     Dates: start: 20151016
  3. ATORVASTATINA [Concomitant]
     Active Substance: ATORVASTATIN
     Indication: DYSLIPIDAEMIA
     Route: 065
     Dates: start: 1999
  4. RANITIDINE. [Concomitant]
     Active Substance: RANITIDINE
     Indication: PREMEDICATION
     Route: 065
     Dates: start: 20151216, end: 20151216
  5. CLORFENAMINA [Concomitant]
     Route: 065
     Dates: start: 20160106, end: 20160106
  6. CLORFENAMINA [Concomitant]
     Indication: PREMEDICATION
     Route: 065
     Dates: start: 20151216, end: 20151216
  7. RANITIDINE. [Concomitant]
     Active Substance: RANITIDINE
     Route: 065
     Dates: start: 20160106, end: 20160106
  8. ATEZOLIZUMAB [Suspect]
     Active Substance: ATEZOLIZUMAB
     Indication: NON-SMALL CELL LUNG CANCER STAGE IV
     Dosage: MOST RECENT DOSE PRIOR TO THE EVENT WAS RECEIVED ON 06/JAN/2016
     Route: 042
     Dates: start: 20151016
  9. BEVACIZUMAB [Suspect]
     Active Substance: BEVACIZUMAB
     Indication: NON-SMALL CELL LUNG CANCER STAGE IV
     Dosage: MOST RECENT DOSE PRIOR TO THE EVENT WAS RECEIVED ON 06/JAN/2016 (1291.5 MG)
     Route: 042
     Dates: start: 20151016
  10. PACLITAXEL. [Suspect]
     Active Substance: PACLITAXEL
     Indication: NON-SMALL CELL LUNG CANCER STAGE IV
     Dosage: MOST RECENT DOSE PRIOR TO THE EVENT WAS RECEIVED ON 16/DEC/2015 (412 MG)
     Route: 042
     Dates: start: 20151016
  11. NIFEDIPINO [Concomitant]
     Indication: HYPERTENSION
     Route: 065
     Dates: start: 1999
  12. CETIRIZINA [Concomitant]
     Active Substance: CETIRIZINE HYDROCHLORIDE
     Indication: ERYTHEMA
     Route: 065
     Dates: start: 20151215

REACTIONS (1)
  - Intestinal obstruction [Fatal]

NARRATIVE: CASE EVENT DATE: 20160107
